FAERS Safety Report 8612813-0 (Version None)
Quarter: 2012Q3

REPORT INFORMATION
  Report Type: 
  Country: None (occurrence: None)
  Receive Date: 20120822
  Receipt Date: 20120402
  Transmission Date: 20120928
  Serious: No
  Sender: FDA-Public Use
  Company Number: US-ASTRAZENECA-2010SE42026

PATIENT
  Age: 70 Year
  Sex: Female
  Weight: 65.8 kg

DRUGS (7)
  1. ALBUTEROL [Concomitant]
  2. ALEVE [Concomitant]
  3. SYMBICORT [Suspect]
     Indication: RESPIRATORY DISORDER
     Dosage: 320 MCG TWO TIMES A DAY
     Route: 055
     Dates: start: 20100901
  4. VITAMIN TAB [Concomitant]
  5. SYMBICORT [Suspect]
     Indication: PARTIAL LUNG RESECTION
     Dosage: 320 MCG TWO TIMES A DAY
     Route: 055
     Dates: start: 20100901
  6. SYMBICORT [Suspect]
     Dosage: 160/4.5 MCG, TWICE DAILY
     Route: 055
  7. SYMBICORT [Suspect]
     Dosage: 160/4.5 MCG, TWICE DAILY
     Route: 055

REACTIONS (4)
  - VISUAL ACUITY REDUCED [None]
  - OFF LABEL USE [None]
  - MALAISE [None]
  - INTENTIONAL DRUG MISUSE [None]
